FAERS Safety Report 14342836 (Version 1)
Quarter: 2018Q1

REPORT INFORMATION
  Report Type: Spontaneous
  Country: US (occurrence: US)
  Receive Date: 20180102
  Receipt Date: 20180102
  Transmission Date: 20180509
  Serious: Yes (Other)
  Sender: FDA-Public Use
  Company Number: US-AMGEN-USASP2017192078

PATIENT
  Age: 30 Year
  Sex: Male

DRUGS (1)
  1. ENBREL [Suspect]
     Active Substance: ETANERCEPT
     Indication: ANKYLOSING SPONDYLITIS
     Dosage: 50 MG, QWK
     Route: 065
     Dates: start: 2015

REACTIONS (7)
  - Ankylosing spondylitis [Recovering/Resolving]
  - Influenza like illness [Unknown]
  - Injection site pain [Unknown]
  - Poor quality drug administered [Unknown]
  - Injection site erythema [Unknown]
  - Injection site swelling [Unknown]
  - Migraine [Unknown]

NARRATIVE: CASE EVENT DATE: 201712
